FAERS Safety Report 11373930 (Version 1)
Quarter: 2015Q3

REPORT INFORMATION
  Report Type: Spontaneous
  Country: US (occurrence: US)
  Receive Date: 20150811
  Receipt Date: 20150811
  Transmission Date: 20151125
  Serious: No
  Sender: FDA-Public Use
  Company Number: US-ELI_LILLY_AND_COMPANY-US201110001731

PATIENT
  Sex: Female
  Weight: 61.68 kg

DRUGS (3)
  1. CIALIS [Suspect]
     Active Substance: TADALAFIL
     Indication: SCLERODERMA
     Dosage: 10 MG, QD
     Dates: start: 20110924, end: 20111001
  2. REVATIO [Concomitant]
     Active Substance: SILDENAFIL CITRATE
  3. DIOVAN [Concomitant]
     Active Substance: VALSARTAN
     Dosage: 240 MG, QD

REACTIONS (6)
  - Back pain [Recovered/Resolved]
  - Musculoskeletal discomfort [Recovered/Resolved]
  - Pain [Recovered/Resolved]
  - Off label use [Recovered/Resolved]
  - Pain in extremity [Recovered/Resolved]
  - Feeling abnormal [Unknown]
